FAERS Safety Report 9984569 (Version 2)
Quarter: 2014Q2

REPORT INFORMATION
  Report Type: Spontaneous
  Country: AU (occurrence: AU)
  Receive Date: 20140307
  Receipt Date: 20140421
  Transmission Date: 20141212
  Serious: Yes (Hospitalization, Other)
  Sender: FDA-Public Use
  Company Number: AU-UCBSA-113751

PATIENT
  Age: 42 Year
  Sex: Male

DRUGS (3)
  1. CIMZIA [Suspect]
     Route: 058
     Dates: start: 2011, end: 201305
  2. CIMZIA [Suspect]
     Dosage: UNKNOWN DOSE
     Route: 058
     Dates: start: 2013
  3. ISONIAZID [Concomitant]

REACTIONS (1)
  - Disseminated tuberculosis [Not Recovered/Not Resolved]
